FAERS Safety Report 4799378-9 (Version None)
Quarter: 2005Q4

REPORT INFORMATION
  Report Type: 
  Country: None (occurrence: None)
  Receive Date: 20051014
  Receipt Date: 20051004
  Transmission Date: 20060501
  Serious: Yes (Hospitalization)
  Sender: FDA-Public Use
  Company Number: US-MERCK-0510USA04791

PATIENT
  Age: 72 Year
  Sex: Male
  Weight: 100 kg

DRUGS (11)
  1. VIOXX [Suspect]
     Indication: ARTHRITIS
     Route: 048
     Dates: start: 20010911, end: 20040915
  2. HYDRALAZINE [Concomitant]
     Route: 065
  3. BESIPIRDINE HYDROCHLORIDE [Concomitant]
     Route: 065
  4. NORVASC [Concomitant]
     Route: 065
  5. METOPROLOL [Concomitant]
     Route: 065
  6. OXAZEPAM [Concomitant]
     Route: 065
  7. LASIX [Concomitant]
     Route: 065
  8. PRILOSEC [Concomitant]
     Route: 065
  9. NITROGLYCERIN [Concomitant]
     Route: 065
  10. LIPITOR [Concomitant]
     Route: 065
  11. PRINIVIL [Concomitant]
     Route: 048

REACTIONS (6)
  - HEADACHE [None]
  - HYPERLIPIDAEMIA [None]
  - HYPERTENSION [None]
  - ISCHAEMIC CEREBRAL INFARCTION [None]
  - ISCHAEMIC STROKE [None]
  - SYNCOPE [None]
